FAERS Safety Report 10345123 (Version 2)
Quarter: 2014Q3

REPORT INFORMATION
  Report Type: Spontaneous
  Country: FR (occurrence: FR)
  Receive Date: 20140728
  Receipt Date: 20140728
  Transmission Date: 20150326
  Serious: Yes (Hospitalization, Other)
  Sender: FDA-Public Use
  Company Number: FR-US-EMD SERONO, INC.-7298424

PATIENT
  Age: 28 Year
  Sex: Female

DRUGS (3)
  1. OVITRELLE [Suspect]
     Active Substance: CHORIOGONADOTROPIN ALFA
     Indication: OVULATION INDUCTION
     Dates: start: 20140302
  2. GONAL-F [Suspect]
     Active Substance: FOLLITROPIN
     Indication: OVULATION INDUCTION
     Dosage: F900 IU/1.5 ML (66 MCG/1.5 ML)
     Dates: start: 20140219, end: 20140301
  3. DECAPEPTYL [Suspect]
     Active Substance: TRIPTORELIN ACETATE
     Indication: ANOVULATORY CYCLE
     Route: 030
     Dates: start: 201403

REACTIONS (5)
  - Ascites [Recovered/Resolved]
  - Deep vein thrombosis [Recovered/Resolved]
  - Ovarian hyperstimulation syndrome [Recovered/Resolved]
  - Ovarian enlargement [Recovered/Resolved]
  - Pleural effusion [Recovered/Resolved]

NARRATIVE: CASE EVENT DATE: 201403
